FAERS Safety Report 9461374 (Version 1)
Quarter: 2013Q3

REPORT INFORMATION
  Report Type: Spontaneous
  Country: US (occurrence: None)
  Receive Date: 20130814
  Receipt Date: 20130814
  Transmission Date: 20140515
  Serious: Yes (Hospitalization)
  Sender: FDA-Public Use
  Company Number: None

PATIENT
  Age: 76 Year
  Sex: Male
  Weight: 83.92 kg

DRUGS (7)
  1. PROMETHAZINE 25MG TABLET/ QUALITEST [Suspect]
     Indication: COUGH
     Dosage: 25 MG 60 ONE EVERY 12 HOURS BY MOUTH
     Route: 048
     Dates: start: 20130618, end: 20130704
  2. TRICOR [Concomitant]
  3. COZAAR [Concomitant]
  4. NEXIUM [Concomitant]
  5. XANAX [Concomitant]
  6. ZOLPIDEM [Concomitant]
  7. LEXAPRO [Concomitant]

REACTIONS (2)
  - Delirium [None]
  - Abnormal behaviour [None]
